FAERS Safety Report 19837581 (Version 2)
Quarter: 2021Q3

REPORT INFORMATION
  Report Type: Spontaneous
  Country: ES (occurrence: ES)
  Receive Date: 20210914
  Receipt Date: 20210923
  Transmission Date: 20211014
  Serious: Yes (Other)
  Sender: FDA-Public Use
  Company Number: ES-INCYTE CORPORATION-2021IN008221

PATIENT

DRUGS (3)
  1. JAKAVI [Suspect]
     Active Substance: RUXOLITINIB
     Indication: GRAFT VERSUS HOST DISEASE IN LUNG
  2. JAKAVI [Suspect]
     Active Substance: RUXOLITINIB
     Indication: CHRONIC GRAFT VERSUS HOST DISEASE
     Dosage: UNK, BID
     Route: 065
  3. VORICONAZOL [Concomitant]
     Active Substance: VORICONAZOLE
     Indication: ANTIFUNGAL PROPHYLAXIS
     Dosage: UNK
     Route: 065

REACTIONS (10)
  - Transaminases increased [Unknown]
  - Anaemia [Unknown]
  - Aspergillus infection [Unknown]
  - Cytomegalovirus infection reactivation [Unknown]
  - Thrombocytopenia [Unknown]
  - Neutropenia [Unknown]
  - Product use in unapproved indication [Unknown]
  - Product use issue [Unknown]
  - Pneumonia cytomegaloviral [Unknown]
  - Therapy partial responder [Unknown]
